FAERS Safety Report 20900998 (Version 1)
Quarter: 2022Q2

REPORT INFORMATION
  Report Type: Spontaneous
  Country: US (occurrence: US)
  Receive Date: 20220601
  Receipt Date: 20220601
  Transmission Date: 20220721
  Serious: No
  Sender: FDA-Public Use
  Company Number: US-ESPERIONTHERAPEUTICS-2022USA00864

PATIENT
  Age: 77 Year
  Sex: Female

DRUGS (2)
  1. NEXLIZET [Suspect]
     Active Substance: BEMPEDOIC ACID\EZETIMIBE
     Indication: Blood cholesterol increased
     Dosage: 180/10MILLIGRAM, QD
     Route: 048
     Dates: start: 20220413
  2. CEPHALEXIN [Concomitant]
     Active Substance: CEPHALEXIN
     Indication: Urinary tract infection
     Dosage: UNK
     Route: 065

REACTIONS (5)
  - Joint swelling [Not Recovered/Not Resolved]
  - Pain [Not Recovered/Not Resolved]
  - Sinus disorder [Not Recovered/Not Resolved]
  - Nasal congestion [Not Recovered/Not Resolved]
  - Arthralgia [Not Recovered/Not Resolved]

NARRATIVE: CASE EVENT DATE: 20220401
